FAERS Safety Report 13517189 (Version 4)
Quarter: 2017Q2

REPORT INFORMATION
  Report Type: Spontaneous
  Country: FR (occurrence: FR)
  Receive Date: 20170505
  Receipt Date: 20170614
  Transmission Date: 20170830
  Serious: Yes (Life-Threatening, Hospitalization, Other)
  Sender: FDA-Public Use
  Company Number: FR-TEVA-764764ROM

PATIENT
  Age: 55 Year
  Sex: Female
  Weight: 44 kg

DRUGS (7)
  1. LAROXYL 40 MG/ML [Concomitant]
     Active Substance: AMITRIPTYLINE HYDROCHLORIDE
     Indication: INSOMNIA
     Dosage: 15 DOSAGE FORMS DAILY;
     Route: 048
     Dates: end: 20170425
  2. TEGRETOL [Suspect]
     Active Substance: CARBAMAZEPINE
     Indication: TRIGEMINAL NEURALGIA
     Dosage: 800 MILLIGRAM DAILY;
     Route: 048
     Dates: start: 20170421, end: 20170425
  3. COPAXONE [Suspect]
     Active Substance: GLATIRAMER ACETATE
     Indication: MULTIPLE SCLEROSIS
     Dosage: 20 MILLIGRAM DAILY;
     Route: 058
     Dates: start: 2005, end: 20170425
  4. LYRICA [Concomitant]
     Active Substance: PREGABALIN
     Indication: NEURALGIA
     Dosage: 100 MILLIGRAM DAILY;
     Route: 048
     Dates: end: 20170425
  5. LIORESAL [Concomitant]
     Active Substance: BACLOFEN
     Indication: MUSCLE SPASTICITY
     Dosage: 30 MILLIGRAM DAILY;
     Route: 048
     Dates: end: 20170425
  6. ALPRAZOLAM. [Concomitant]
     Active Substance: ALPRAZOLAM
     Indication: ANXIETY
     Dosage: .25 MILLIGRAM DAILY;
     Route: 048
     Dates: end: 20170425
  7. LIORESAL [Concomitant]
     Active Substance: BACLOFEN
     Dosage: 15 MILLIGRAM DAILY;

REACTIONS (3)
  - Stupor [Recovering/Resolving]
  - Toxic encephalopathy [Recovered/Resolved]
  - Hypothermia [Recovered/Resolved]

NARRATIVE: CASE EVENT DATE: 20170421
